FAERS Safety Report 6071269-5 (Version None)
Quarter: 2009Q1

REPORT INFORMATION
  Report Type: 
  Country: None (occurrence: None)
  Receive Date: 20090204
  Receipt Date: 20090119
  Transmission Date: 20090719
  Serious: Yes (Other)
  Sender: FDA-Public Use
  Company Number: 2009S1001085

PATIENT
  Age: 58 Year
  Sex: Female

DRUGS (2)
  1. PAROXETINE HCL [Suspect]
     Indication: OBSESSIVE-COMPULSIVE DISORDER
  2. METHYLENE BLUE (METHYLTHIONINIUM CHLORIDE) [Suspect]
     Dosage: INTRAVENOUS

REACTIONS (1)
  - SEROTONIN SYNDROME [None]
